FAERS Safety Report 23784006 (Version 1)
Quarter: 2024Q2

REPORT INFORMATION
  Report Type: Spontaneous
  Country: US (occurrence: US)
  Receive Date: 20240425
  Receipt Date: 20240425
  Transmission Date: 20240716
  Serious: No
  Sender: FDA-Public Use
  Company Number: US-SANOFI-02019368

PATIENT
  Age: 38 Year
  Sex: Female

DRUGS (1)
  1. TOUJEO [Suspect]
     Active Substance: INSULIN GLARGINE
     Indication: Diabetes mellitus
     Dosage: 70 IU, QD
     Route: 065

REACTIONS (7)
  - Somnolence [Unknown]
  - Nasopharyngitis [Unknown]
  - Pyrexia [Unknown]
  - Hypoacusis [Unknown]
  - Fatigue [Unknown]
  - Blood glucose increased [Unknown]
  - Blood glucose decreased [Unknown]
